FAERS Safety Report 10215868 (Version 2)
Quarter: 2015Q1

REPORT INFORMATION
  Report Type: Other
  Country: GB (occurrence: GB)
  Receive Date: 20140604
  Receipt Date: 20150311
  Transmission Date: 20150720
  Serious: Yes (Death, Other)
  Sender: FDA-Public Use
  Company Number: GB-SUN PHARMACEUTICAL INDUSTRIES LTD-2014SUN01184

PATIENT

DRUGS (6)
  1. CLOZARIL [Suspect]
     Active Substance: CLOZAPINE
     Dosage: 400 MG, DAILY
     Route: 048
  2. VENLAFAXINE HYDROCHLORIDE 37.5MG TABLET [Suspect]
     Active Substance: VENLAFAXINE HYDROCHLORIDE
     Indication: PRODUCT USED FOR UNKNOWN INDICATION
     Dosage: 150 MG, DAILY
     Route: 048
  3. AMISULPRIDE [Suspect]
     Active Substance: AMISULPRIDE
     Indication: PRODUCT USED FOR UNKNOWN INDICATION
     Dosage: UNK
     Route: 048
  4. METHIOPROPAMINE [Suspect]
     Active Substance: METHIOPROPAMINE
     Indication: PRODUCT USED FOR UNKNOWN INDICATION
     Route: 065
  5. CLOZARIL [Suspect]
     Active Substance: CLOZAPINE
     Indication: SCHIZOPHRENIA
     Dosage: UNK
     Route: 048
     Dates: start: 20050818
  6. METHYLETHCATHINONE [Suspect]
     Active Substance: MEPHEDRONE
     Indication: PRODUCT USED FOR UNKNOWN INDICATION

REACTIONS (18)
  - Mental impairment [Unknown]
  - Scab [None]
  - Aortic arteriosclerosis [None]
  - Toxicity to various agents [Fatal]
  - Haemorrhoids [Unknown]
  - Alcohol use [None]
  - Arteriosclerosis coronary artery [None]
  - Pulmonary oedema [None]
  - Cardiac arrest [Fatal]
  - Arteriosclerosis [None]
  - Paranoia [None]
  - Coronary artery stenosis [None]
  - Carotid arteriosclerosis [None]
  - Accidental overdose [None]
  - Peripheral venous disease [None]
  - Pulmonary congestion [None]
  - Accidental death [None]
  - Epistaxis [None]

NARRATIVE: CASE EVENT DATE: 20130716
